FAERS Safety Report 19985675 (Version 1)
Quarter: 2021Q4

REPORT INFORMATION
  Report Type: Spontaneous
  Country: CA (occurrence: CA)
  Receive Date: 20211022
  Receipt Date: 20211022
  Transmission Date: 20220303
  Serious: Yes (Life-Threatening, Disabling, Other)
  Sender: FDA-Public Use
  Company Number: CA-009507513-1701CAN012307

PATIENT
  Sex: Male
  Weight: 113.39 kg

DRUGS (1)
  1. PROPECIA [Suspect]
     Active Substance: FINASTERIDE
     Indication: Alopecia
     Dosage: 1 MILLIGRAM, QD (1 EVERY 1 DAY (S))
     Route: 048
     Dates: start: 19970501, end: 20160301

REACTIONS (10)
  - Depression suicidal [Not Recovered/Not Resolved]
  - Erectile dysfunction [Not Recovered/Not Resolved]
  - Gynaecomastia [Not Recovered/Not Resolved]
  - Libido decreased [Not Recovered/Not Resolved]
  - Mammogram [Not Recovered/Not Resolved]
  - Mental disorder [Not Recovered/Not Resolved]
  - Penile size reduced [Not Recovered/Not Resolved]
  - Prostatic pain [Not Recovered/Not Resolved]
  - Testicular pain [Not Recovered/Not Resolved]
  - Ultrasound scan [Not Recovered/Not Resolved]

NARRATIVE: CASE EVENT DATE: 19970928
